FAERS Safety Report 7511934-3 (Version None)
Quarter: 2011Q2

REPORT INFORMATION
  Report Type: 
  Country: None (occurrence: None)
  Receive Date: 20110520
  Receipt Date: 20110510
  Transmission Date: 20111010
  Serious: Yes (Death)
  Sender: FDA-Public Use
  Company Number: WAES 1104USA03922

PATIENT
  Age: 67 Year
  Sex: Male

DRUGS (8)
  1. EMEND [Suspect]
     Indication: PROPHYLAXIS OF NAUSEA AND VOMITING
     Dosage: 125 MG/DAILY/PO; 80 MG/DAILY/PO
     Route: 048
     Dates: start: 20110325, end: 20110325
  2. EMEND [Suspect]
     Indication: PROPHYLAXIS OF NAUSEA AND VOMITING
     Dosage: 125 MG/DAILY/PO; 80 MG/DAILY/PO
     Route: 048
     Dates: start: 20110326, end: 20110327
  3. FLUOROURACIL [Suspect]
     Indication: OESOPHAGEAL CARCINOMA
     Dosage: 1000 MG/DAILY/IV
     Route: 042
     Dates: start: 20110325, end: 20110331
  4. DOXORUBICIN HCL [Suspect]
     Dates: start: 20110325, end: 20110325
  5. HUMULIN R [Concomitant]
  6. ZOFRAN [Concomitant]
  7. CISPLATIN [Suspect]
  8. HALOPERIDOL [Concomitant]

REACTIONS (13)
  - PNEUMONIA [None]
  - HYPERBILIRUBINAEMIA [None]
  - STOMATITIS [None]
  - PLATELET COUNT DECREASED [None]
  - DIHYDROPYRIMIDINE DEHYDROGENASE DEFICIENCY [None]
  - DISSEMINATED INTRAVASCULAR COAGULATION [None]
  - FEBRILE NEUTROPENIA [None]
  - ORAL INFECTION [None]
  - CHEMOTHERAPEUTIC DRUG LEVEL ABOVE THERAPEUTIC [None]
  - STEVENS-JOHNSON SYNDROME [None]
  - ACUTE RESPIRATORY DISTRESS SYNDROME [None]
  - SKIN INFECTION [None]
  - BONE MARROW FAILURE [None]
